FAERS Safety Report 17162159 (Version 1)
Quarter: 2019Q4

REPORT INFORMATION
  Report Type: Spontaneous
  Country: CH (occurrence: CH)
  Receive Date: 20191217
  Receipt Date: 20191217
  Transmission Date: 20200122
  Serious: Yes (Hospitalization)
  Sender: FDA-Public Use
  Company Number: CH-TEVA-2019-CH-1153180

PATIENT
  Age: 65 Year
  Sex: Male

DRUGS (2)
  1. TAXOL [Suspect]
     Active Substance: PACLITAXEL
     Indication: UNDIFFERENTIATED NASOPHARYNGEAL CARCINOMA
     Route: 065
  2. CARBOPLATIN. [Suspect]
     Active Substance: CARBOPLATIN
     Indication: UNDIFFERENTIATED NASOPHARYNGEAL CARCINOMA
     Dosage: 2 AREA UNDER THE CURVE
     Route: 042

REACTIONS (8)
  - Bacterial infection [Recovered/Resolved]
  - Bone erosion [Recovered/Resolved]
  - Carotid artery stenosis [Recovered/Resolved]
  - Osteitis [Recovered/Resolved]
  - Staphylococcal infection [Recovered/Resolved]
  - Nasal ulcer [Recovered/Resolved]
  - Pharyngeal ulceration [Recovered/Resolved]
  - Pharyngeal abscess [Recovered/Resolved]
